FAERS Safety Report 8050670 (Version 3)
Quarter: 2014Q1

REPORT INFORMATION
  Report Type: Spontaneous
  Country: US (occurrence: US)
  Receive Date: 20110725
  Receipt Date: 20140220
  Transmission Date: 20141002
  Serious: Yes (Life-Threatening, Other)
  Sender: FDA-Public Use
  Company Number: US-RANBAXY-2011US-46082

PATIENT
  Age: 79 Year
  Sex: Male

DRUGS (1)
  1. ISOTRETINOIN [Suspect]
     Indication: SKIN CANCER
     Dosage: 10 MG, QOD
     Route: 048

REACTIONS (2)
  - Peripheral artery thrombosis [Recovering/Resolving]
  - Off label use [Recovered/Resolved]
